FAERS Safety Report 20628022 (Version 1)
Quarter: 2022Q1

REPORT INFORMATION
  Report Type: Spontaneous
  Country: US (occurrence: None)
  Receive Date: 20220323
  Receipt Date: 20220323
  Transmission Date: 20220423
  Serious: Yes (Life-Threatening, Hospitalization, Disabling, Other)
  Sender: FDA-Public Use
  Company Number: None

PATIENT
  Age: 32 Year
  Sex: Female
  Weight: 54.9 kg

DRUGS (8)
  1. SENNA LAXATIVE NATURAL VEGETABLE LAXATIVE [Suspect]
     Active Substance: SENNOSIDES
     Indication: Constipation
     Dosage: OTHER QUANTITY : 18 TABLET(S);?OTHER FREQUENCY : ONCE TO TWICE WKLY;?
     Route: 048
     Dates: start: 20180801, end: 20210601
  2. VITAMIN B COMPLEX [Concomitant]
     Active Substance: CYANOCOBALAMIN\DEXPANTHENOL\NIACINAMIDE\PYRIDOXINE HYDROCHLORIDE\RIBOFLAVIN 5^-PHOSPHATE SODIUM\THIA
  3. VITAMINS [Concomitant]
     Active Substance: VITAMINS
  4. ZINC [Concomitant]
     Active Substance: ZINC
  5. CURCUMIN [Concomitant]
     Active Substance: CURCUMIN
  6. OMEGA 3 [Concomitant]
     Active Substance: CAPSAICIN
  7. VITAMIN D [Concomitant]
     Active Substance: VITAMIN D NOS
  8. PSYLLIUM HUSK [Concomitant]
     Active Substance: PSYLLIUM HUSK

REACTIONS (4)
  - Cholangiocarcinoma [None]
  - Jaundice [None]
  - Biliary obstruction [None]
  - Intentional product use issue [None]

NARRATIVE: CASE EVENT DATE: 20210601
